FAERS Safety Report 5637533-6 (Version None)
Quarter: 2008Q1

REPORT INFORMATION
  Report Type: 
  Country: None (occurrence: None)
  Receive Date: 20080225
  Receipt Date: 20080213
  Transmission Date: 20080703
  Serious: Yes (Hospitalization, Other)
  Sender: FDA-Public Use
  Company Number: US-PFIZER INC-2008015278

PATIENT
  Sex: Male
  Weight: 104.54 kg

DRUGS (2)
  1. CHANTIX [Suspect]
     Indication: SMOKING CESSATION THERAPY
  2. ANTIHYPERTENSIVES [Concomitant]

REACTIONS (3)
  - DEPRESSION [None]
  - LOSS OF EMPLOYMENT [None]
  - SUICIDAL IDEATION [None]
